FAERS Safety Report 9353108 (Version 1)
Quarter: 2013Q2

REPORT INFORMATION
  Report Type: Spontaneous
  Country: US (occurrence: None)
  Receive Date: 20130612
  Receipt Date: 20130612
  Transmission Date: 20140414
  Serious: Yes (Hospitalization)
  Sender: FDA-Public Use
  Company Number: DSU-2013-03539

PATIENT
  Age: 85 Year
  Sex: Female
  Weight: 77.11 kg

DRUGS (4)
  1. BENICAR (OLMESARTAN MEDOXOMIL) (20 MILLIGRAM, TABLET) (OLMESARTAN MEDOXOMIL) [Suspect]
     Indication: HYPERTENSION
     Route: 048
     Dates: start: 2013, end: 2013
  2. HYDROCHLOROTHIAZIDE [Suspect]
     Indication: HYPERTENSION
     Route: 048
  3. SYNTHROID [Concomitant]
  4. INSULIN [Concomitant]

REACTIONS (8)
  - Pollakiuria [None]
  - Balance disorder [None]
  - Condition aggravated [None]
  - Thinking abnormal [None]
  - Fatigue [None]
  - Dizziness [None]
  - Drug interaction [None]
  - Palpitations [None]
